FAERS Safety Report 6300159-5 (Version None)
Quarter: 2009Q3

REPORT INFORMATION
  Report Type: 
  Country: None (occurrence: None)
  Receive Date: 20090806
  Receipt Date: 20090722
  Transmission Date: 20100115
  Serious: Yes (Hospitalization)
  Sender: FDA-Public Use
  Company Number: US-GENENTECH-282859

PATIENT
  Sex: Female

DRUGS (18)
  1. TRASTUZUMAB [Suspect]
     Indication: BREAST CANCER
     Dosage: 560 MG, Q3W
     Route: 042
     Dates: start: 20090424
  2. BEVACIZUMAB [Suspect]
     Indication: BREAST CANCER
     Dosage: 1050 MG, Q3W
     Route: 042
     Dates: start: 20090424
  3. DOCETAXEL [Suspect]
     Indication: BREAST CANCER
     Dosage: 131 MG, Q3W
     Route: 042
     Dates: start: 20090424
  4. CARBOPLATIN [Suspect]
     Indication: BREAST CANCER
     Dosage: 820 MG, Q3W
     Route: 042
     Dates: start: 20090424
  5. TYLENOL (CAPLET) [Concomitant]
     Indication: DRUG USE FOR UNKNOWN INDICATION
     Dosage: UNK
     Dates: start: 20090304
  6. PRILOSEC [Concomitant]
     Indication: DRUG USE FOR UNKNOWN INDICATION
     Dosage: UNK
     Dates: start: 20090417, end: 20090430
  7. IMODIUM [Concomitant]
     Indication: DRUG USE FOR UNKNOWN INDICATION
     Dosage: UNK
     Dates: start: 20090428
  8. NEXIUM [Concomitant]
     Indication: DRUG USE FOR UNKNOWN INDICATION
     Dosage: UNK
     Dates: start: 20090430
  9. LEVAQUIN [Concomitant]
     Indication: DRUG USE FOR UNKNOWN INDICATION
     Dosage: UNK
     Dates: start: 20090430, end: 20090501
  10. ATIVAN [Concomitant]
     Indication: DRUG USE FOR UNKNOWN INDICATION
     Dosage: UNK
     Dates: start: 20090430, end: 20090430
  11. SODIUM CHLORIDE [Concomitant]
     Indication: DRUG USE FOR UNKNOWN INDICATION
     Dosage: UNK
     Dates: start: 20090430, end: 20090503
  12. METRONIDAZOLE [Concomitant]
     Indication: DRUG USE FOR UNKNOWN INDICATION
     Dosage: UNK
     Dates: start: 20090430, end: 20090507
  13. FLUCONAZOLE [Concomitant]
     Indication: DRUG USE FOR UNKNOWN INDICATION
     Dosage: UNK
     Dates: start: 20090430, end: 20090430
  14. LEVOFLOXACIN [Concomitant]
     Indication: DRUG USE FOR UNKNOWN INDICATION
     Dosage: UNK
     Dates: start: 20090430, end: 20090501
  15. LORAZEPAM [Concomitant]
     Indication: DRUG USE FOR UNKNOWN INDICATION
     Dosage: UNK
     Dates: start: 20090430, end: 20090430
  16. SODIUM CHLORIDE [Concomitant]
     Dosage: UNK
     Dates: start: 20090430, end: 20090503
  17. FLAGYL [Concomitant]
     Indication: DRUG USE FOR UNKNOWN INDICATION
     Dosage: UNK
     Dates: start: 20090430, end: 20090507
  18. DIFLUCAN [Concomitant]
     Indication: DRUG USE FOR UNKNOWN INDICATION
     Dosage: UNK
     Dates: start: 20090430, end: 20090430

REACTIONS (3)
  - ABDOMINAL PAIN [None]
  - DIARRHOEA [None]
  - GASTROINTESTINAL HAEMORRHAGE [None]
